FAERS Safety Report 6976620-7 (Version None)
Quarter: 2010Q3

REPORT INFORMATION
  Report Type: 
  Country: None (occurrence: None)
  Receive Date: 20100824
  Receipt Date: 20100604
  Transmission Date: 20110219
  Serious: No
  Sender: FDA-Public Use
  Company Number: 309652

PATIENT
  Age: 64 Year
  Sex: Female

DRUGS (3)
  1. VICTOZA [Suspect]
     Indication: TYPE 2 DIABETES MELLITUS
     Dosage: 0.6 MG, QD, SUBCUTANEOUS
     Route: 058
     Dates: start: 20100603
  2. METFORMIN (METFORMIN) TABLET [Concomitant]
  3. GLIMEPIRIDE [Concomitant]

REACTIONS (1)
  - BLOOD GLUCOSE DECREASED [None]
